FAERS Safety Report 10082109 (Version 3)
Quarter: 2014Q2

REPORT INFORMATION
  Report Type: Report from Study
  Country: US (occurrence: US)
  Receive Date: 20140416
  Receipt Date: 20140610
  Transmission Date: 20141212
  Serious: Yes (Hospitalization)
  Sender: FDA-Public Use
  Company Number: US-BRISTOL-MYERS SQUIBB COMPANY-20612255

PATIENT
  Sex: 0

DRUGS (4)
  1. ARIPIPRAZOLE [Suspect]
     Indication: DEPRESSION
     Dosage: LAST DATE STUDY DRUG TAKEN 18MAR14
     Dates: start: 20131106
  2. VITAMIN B COMPLEX + C [Concomitant]
  3. NICOTINE [Concomitant]
     Dosage: GUM
  4. IPRATROPIUM + ALBUTEROL [Concomitant]
     Dosage: INHALER

REACTIONS (1)
  - Alcohol abuse [Recovered/Resolved with Sequelae]
